FAERS Safety Report 10168418 (Version 1)
Quarter: 2014Q2

REPORT INFORMATION
  Report Type: Spontaneous
  Country: GB (occurrence: GB)
  Receive Date: 20140513
  Receipt Date: 20140513
  Transmission Date: 20141212
  Serious: Yes (Other)
  Sender: FDA-Public Use
  Company Number: GB-BEH-2014042420

PATIENT
  Sex: Male
  Weight: 75 kg

DRUGS (3)
  1. PRIVIGEN [Suspect]
     Dosage: BATCH NO.: 10G
  2. PRIVIGEN [Suspect]
     Dosage: BATCH NO.: 20G
  3. AMLODIPINE [Concomitant]

REACTIONS (1)
  - Eczema [Not Recovered/Not Resolved]
